FAERS Safety Report 6307984-5 (Version None)
Quarter: 2009Q3

REPORT INFORMATION
  Report Type: 
  Country: None (occurrence: None)
  Receive Date: 20090810
  Receipt Date: 20090727
  Transmission Date: 20100115
  Serious: Yes (Other)
  Sender: FDA-Public Use
  Company Number: 8049284

PATIENT

DRUGS (1)
  1. CIMZIA [Suspect]

REACTIONS (1)
  - ANAPHYLACTIC REACTION [None]
